FAERS Safety Report 14336837 (Version 1)
Quarter: 2017Q4

REPORT INFORMATION
  Report Type: Spontaneous
  Country: AR (occurrence: AR)
  Receive Date: 20171229
  Receipt Date: 20171229
  Transmission Date: 20180321
  Serious: Yes (Other)
  Sender: FDA-Public Use
  Company Number: AR-LANNETT COMPANY, INC.-AR-2017LAN001283

PATIENT
  Age: 66 Year
  Sex: Female

DRUGS (10)
  1. LOPINAVIR AND RITONAVIR [Suspect]
     Active Substance: LOPINAVIR\RITONAVIR
     Indication: ANTIRETROVIRAL THERAPY
  2. OMBITASVIR [Suspect]
     Active Substance: OMBITASVIR
     Indication: HEPATITIS C VIRUS TEST POSITIVE
     Dosage: 25 MG, QD
     Route: 065
  3. RIBAVIRIN. [Suspect]
     Active Substance: RIBAVIRIN
     Indication: HEPATITIS C VIRUS TEST POSITIVE
     Dosage: UNK
     Route: 065
  4. RIBAVIRIN. [Suspect]
     Active Substance: RIBAVIRIN
     Indication: ANTIRETROVIRAL THERAPY
  5. LOPINAVIR AND RITONAVIR [Suspect]
     Active Substance: LOPINAVIR\RITONAVIR
     Indication: HEPATITIS C VIRUS TEST POSITIVE
     Dosage: 100 MG, QD
     Route: 065
  6. DASABUVIR [Suspect]
     Active Substance: DASABUVIR
     Indication: HEPATITIS C VIRUS TEST POSITIVE
     Dosage: 250 MG, BID
     Route: 065
  7. PARITAPREVIR [Suspect]
     Active Substance: PARITAPREVIR
     Indication: HEPATITIS C VIRUS TEST POSITIVE
     Dosage: 150 MG, QD
     Route: 065
  8. DASABUVIR [Suspect]
     Active Substance: DASABUVIR
     Indication: ANTIRETROVIRAL THERAPY
  9. OMBITASVIR [Suspect]
     Active Substance: OMBITASVIR
     Indication: ANTIRETROVIRAL THERAPY
  10. PARITAPREVIR [Suspect]
     Active Substance: PARITAPREVIR
     Indication: ANTIRETROVIRAL THERAPY

REACTIONS (1)
  - Hepatic failure [Unknown]
